FAERS Safety Report 16907959 (Version 1)
Quarter: 2019Q4

REPORT INFORMATION
  Report Type: Report from Study
  Country: DE (occurrence: DE)
  Receive Date: 20191011
  Receipt Date: 20191011
  Transmission Date: 20200122
  Serious: Yes (Hospitalization)
  Sender: FDA-Public Use
  Company Number: DE-ROCHE-2428391

PATIENT
  Age: 69 Year
  Sex: Female
  Weight: 78.5 kg

DRUGS (8)
  1. CYMBALTA [Concomitant]
     Active Substance: DULOXETINE HYDROCHLORIDE
     Route: 065
  2. PANTOPRAZOLE [Concomitant]
     Active Substance: PANTOPRAZOLE
     Route: 065
  3. THIAMAZOL [Concomitant]
     Active Substance: METHIMAZOLE
     Route: 065
  4. BUDESONIDE. [Concomitant]
     Active Substance: BUDESONIDE
     Route: 065
  5. ATEZOLIZUMAB. [Suspect]
     Active Substance: ATEZOLIZUMAB
     Indication: MALIGNANT NEOPLASM OF UNKNOWN PRIMARY SITE
     Dosage: DATE OF LAST DOSE OF ATEZOLIZUMAB PRIOR TO SAE: 26/AUG/2019
     Route: 042
     Dates: start: 20190824
  6. PACLITAXEL. [Suspect]
     Active Substance: PACLITAXEL
     Indication: MALIGNANT NEOPLASM OF UNKNOWN PRIMARY SITE
     Dosage: DATE OF LAST DOSE OF PACLITAXEL PRIOR TO ADVERSE EVENT: 05/AUG/2019
     Route: 042
     Dates: start: 20190328
  7. CARBOPLATIN. [Suspect]
     Active Substance: CARBOPLATIN
     Indication: MALIGNANT NEOPLASM OF UNKNOWN PRIMARY SITE
     Dosage: DATE OF LAST DOSE OF CARBOPLATIN PRIOR TO ADVERSE EVENT: 05/AUG/2019
     Route: 042
     Dates: start: 20190328
  8. METAMIZOLE [Concomitant]
     Active Substance: METAMIZOLE
     Route: 065

REACTIONS (1)
  - Haemangioma removal [Not Recovered/Not Resolved]

NARRATIVE: CASE EVENT DATE: 20190827
